FAERS Safety Report 8360310-2 (Version None)
Quarter: 2012Q2

REPORT INFORMATION
  Report Type: 
  Country: None (occurrence: None)
  Receive Date: 20120515
  Receipt Date: 20120507
  Transmission Date: 20120825
  Serious: Yes (Hospitalization)
  Sender: FDA-Public Use
  Company Number: IT-NOVOPROD-351175

PATIENT
  Age: 71 Year
  Sex: Female

DRUGS (7)
  1. METFORMINA                         /00082701/ [Concomitant]
     Dosage: 1 TAB, QD
     Route: 048
     Dates: start: 20120101
  2. NOVOMIX 30 FLEXPEN [Suspect]
     Indication: DIABETES MELLITUS
     Dosage: 12 U, QD
     Route: 058
     Dates: start: 20120101
  3. OMEPRAZOLE [Concomitant]
     Dosage: 1 TAB, QD
     Route: 048
  4. OLMESARTAN MEDOXOMIL [Concomitant]
     Dosage: 1 TAB, QD
     Route: 048
  5. LEVOTHYROXINE SODIUM [Concomitant]
  6. SIMVASTATIN [Concomitant]
     Dosage: 1 TAB, QD
     Route: 048
  7. ASPIRIN [Concomitant]
     Dosage: 1 TAB, QD
     Route: 048

REACTIONS (3)
  - HYPERHIDROSIS [None]
  - SOPOR [None]
  - HYPOGLYCAEMIA [None]
